FAERS Safety Report 7759536-8 (Version None)
Quarter: 2011Q3

REPORT INFORMATION
  Report Type: 
  Country: None (occurrence: None)
  Receive Date: 20110919
  Receipt Date: 20110919
  Transmission Date: 20111222
  Serious: Yes (Other)
  Sender: FDA-Public Use
  Company Number: None

PATIENT
  Age: 57 Year
  Sex: Female
  Weight: 104.32 kg

DRUGS (1)
  1. SIMVASTATIN [Suspect]
     Indication: BLOOD CHOLESTEROL INCREASED
     Dosage: 1 CAPSULE
     Route: 048
     Dates: start: 20090801, end: 20110619

REACTIONS (8)
  - ARTHRALGIA [None]
  - MUSCULAR DYSTROPHY [None]
  - DISTURBANCE IN ATTENTION [None]
  - ASTHENIA [None]
  - PAIN IN EXTREMITY [None]
  - FIBROMYALGIA [None]
  - MUSCULOSKELETAL PAIN [None]
  - MUSCLE SPASMS [None]
